FAERS Safety Report 4282458-4 (Version None)
Quarter: 2004Q1

REPORT INFORMATION
  Report Type: 
  Country: None (occurrence: None)
  Receive Date: 20040129
  Receipt Date: 20040114
  Transmission Date: 20041129
  Serious: Yes (Hospitalization)
  Sender: FDA-Public Use
  Company Number: 189486

PATIENT
  Age: 22 Year
  Sex: Female
  Weight: 104.3273 kg

DRUGS (4)
  1. AVONEX [Suspect]
     Indication: MULTIPLE SCLEROSIS
     Dosage: 30 MCG QW IM
     Route: 030
     Dates: start: 20020726
  2. IBUPROFEN [Concomitant]
  3. WELLBUTRIN SR [Concomitant]
  4. YASMIN [Concomitant]

REACTIONS (1)
  - HEART RATE INCREASED [None]
